FAERS Safety Report 5577881-1 (Version None)
Quarter: 2007Q4

REPORT INFORMATION
  Report Type: 
  Country: None (occurrence: None)
  Receive Date: 20071231
  Receipt Date: 20071105
  Transmission Date: 20080405
  Serious: Yes (Other)
  Sender: FDA-Public Use
  Company Number: US-PURDUE-USA_2007_0030763

PATIENT
  Sex: Female

DRUGS (5)
  1. OXYCONTIN [Suspect]
     Indication: HEADACHE
     Dosage: 30 MG, BID
     Dates: start: 20000414, end: 20010831
  2. CYTOXAN [Concomitant]
     Dosage: 1200 ML, UNK
     Route: 041
  3. METHYLPREDNISOLONE [Concomitant]
     Dosage: 4 MG, TID
  4. METHYLPREDNISOLONE [Concomitant]
     Dosage: UNK ML, UNK
     Route: 041
  5. TORECAN [Concomitant]
     Indication: NAUSEA
     Dosage: 10 MG, UNK

REACTIONS (21)
  - AGITATION [None]
  - ANOREXIA [None]
  - ANXIETY [None]
  - ASTHENIA [None]
  - COMPLEX REGIONAL PAIN SYNDROME [None]
  - DRUG DEPENDENCE [None]
  - FEAR [None]
  - FEELING OF DESPAIR [None]
  - HEADACHE [None]
  - LOSS OF CONSCIOUSNESS [None]
  - LOSS OF EMPLOYMENT [None]
  - LOWER LIMB FRACTURE [None]
  - MAJOR DEPRESSION [None]
  - NAUSEA [None]
  - PAIN [None]
  - PANIC ATTACK [None]
  - PARANOIA [None]
  - SOCIAL AVOIDANT BEHAVIOUR [None]
  - SUICIDAL IDEATION [None]
  - TREMOR [None]
  - VOMITING [None]
